FAERS Safety Report 20889368 (Version 1)
Quarter: 2022Q2

REPORT INFORMATION
  Report Type: Report from Study
  Country: IN (occurrence: IN)
  Receive Date: 20220530
  Receipt Date: 20220530
  Transmission Date: 20220720
  Serious: Yes (Death, Hospitalization)
  Sender: FDA-Public Use
  Company Number: IN-NOVARTISPH-NVSC2022IN103925

PATIENT
  Age: 30 Year
  Sex: Female

DRUGS (1)
  1. ALPELISIB [Suspect]
     Active Substance: ALPELISIB
     Indication: Breast cancer metastatic
     Dosage: 250 MG, QD
     Route: 065
     Dates: start: 20220319, end: 20220514

REACTIONS (7)
  - Pneumonia [Fatal]
  - General physical health deterioration [Fatal]
  - Loss of consciousness [Unknown]
  - Epistaxis [Unknown]
  - Mouth haemorrhage [Unknown]
  - Blood glucose increased [Unknown]
  - Product use issue [Unknown]

NARRATIVE: CASE EVENT DATE: 20220427
